FAERS Safety Report 8300476-3 (Version None)
Quarter: 2012Q1

REPORT INFORMATION
  Report Type: 
  Country: None (occurrence: None)
  Receive Date: 20120326
  Receipt Date: 20110614
  Transmission Date: 20120608
  Serious: Yes (Hospitalization, Other)
  Sender: FDA-Public Use
  Company Number: PHHY2011US52601

PATIENT
  Age: 65 Year
  Sex: Male
  Weight: 74.8 kg

DRUGS (11)
  1. GABAPENTIN [Concomitant]
  2. CLOPIDOGREL [Concomitant]
  3. RANITIDINE HYDROCHLORIDE [Concomitant]
  4. METOPROLOL TARTRATE [Concomitant]
  5. TELMISARTAN [Concomitant]
  6. TASIGNA [Suspect]
     Indication: CHRONIC MYELOID LEUKAEMIA
     Dosage: 400 MG, BID, ORAL 400 MG, QD, ORAL 400 MG, AM, ORAL 200 MG, PM, ORAL
     Route: 048
     Dates: start: 20080212
  7. TASIGNA [Suspect]
     Indication: CHRONIC MYELOID LEUKAEMIA
     Dosage: 400 MG, BID, ORAL 400 MG, QD, ORAL 400 MG, AM, ORAL 200 MG, PM, ORAL
     Route: 048
     Dates: start: 20071219, end: 20080130
  8. MISOPROSTOL [Concomitant]
  9. BACLOFEN [Concomitant]
  10. ISOSORBIDE MONONITRATE [Concomitant]
  11. DOCUSATE (DOCUSATE) [Concomitant]

REACTIONS (2)
  - CHEST PAIN [None]
  - THROMBOCYTOPENIA [None]
